FAERS Safety Report 7349637-0 (Version None)
Quarter: 2011Q1

REPORT INFORMATION
  Report Type: 
  Country: None (occurrence: None)
  Receive Date: 20110314
  Receipt Date: 20100519
  Transmission Date: 20110831
  Serious: No
  Sender: FDA-Public Use
  Company Number: A0860717A

PATIENT
  Sex: Female

DRUGS (2)
  1. AUGMENTIN '125' [Suspect]
     Indication: TOOTH ABSCESS
     Route: 065
  2. CIPRO [Suspect]
     Route: 065
     Dates: start: 20100501

REACTIONS (2)
  - VOMITING [None]
  - DIARRHOEA [None]
